FAERS Safety Report 10039127 (Version 1)
Quarter: 2014Q1

REPORT INFORMATION
  Report Type: Spontaneous
  Country: US (occurrence: None)
  Receive Date: 20140306
  Receipt Date: 20140306
  Transmission Date: 20141002
  Serious: Yes (Hospitalization, Other)
  Sender: FDA-Public Use
  Company Number: 163-21880-13062073

PATIENT
  Age: 80 Year
  Sex: Female
  Weight: 54.98 kg

DRUGS (5)
  1. REVLIMID [Suspect]
     Indication: PLASMA CELL MYELOMA
     Dosage: 25 MG, 1 IN 1 D, PO 07/19/2011 - UNKNOWN THERAPY DATES
     Route: 048
     Dates: start: 20110719
  2. WARFARIN (WARFARIN) [Concomitant]
  3. LASIX (FUROSEMIDE) - (UNKNOWN) [Concomitant]
  4. DECADRON (DEXAMETHASONE) [Concomitant]
  5. OXYCODONE (OXYCODONE HYDROCHLORIDE) (OXYCODONE) [Concomitant]

REACTIONS (4)
  - Pancytopenia [None]
  - Renal failure [None]
  - Granulocyte count decreased [None]
  - White blood cell count decreased [None]
